FAERS Safety Report 7112705-2 (Version None)
Quarter: 2010Q4

REPORT INFORMATION
  Report Type: 
  Country: None (occurrence: None)
  Receive Date: 20101119
  Receipt Date: 20101110
  Transmission Date: 20110411
  Serious: Yes (Other)
  Sender: FDA-Public Use
  Company Number: ES-ASTRAZENECA-2010SE49354

PATIENT
  Age: 30002 Day
  Sex: Female
  Weight: 71.6 kg

DRUGS (7)
  1. CRESTOR [Suspect]
     Indication: BLOOD CHOLESTEROL
     Route: 048
     Dates: start: 20100809, end: 20101013
  2. PLAVIX [Concomitant]
     Route: 048
     Dates: start: 20100809
  3. EMCONCOR [Concomitant]
     Dosage: 5. 5-0-2.5
     Route: 048
     Dates: start: 20100809
  4. ACOVIL [Concomitant]
     Route: 048
     Dates: start: 20100809, end: 20100909
  5. ASPIRIN [Concomitant]
     Dosage: 1/24 HOUR
     Route: 048
     Dates: start: 20100809
  6. PANTOPRAZOLE SODIUM [Concomitant]
     Route: 048
     Dates: start: 20100809, end: 20101020
  7. CAFINITRINA [Concomitant]

REACTIONS (1)
  - ALOPECIA [None]
